FAERS Safety Report 7896898-5 (Version None)
Quarter: 2011Q4

REPORT INFORMATION
  Report Type: 
  Country: None (occurrence: None)
  Receive Date: 20111107
  Receipt Date: 20110715
  Transmission Date: 20120403
  Serious: No
  Sender: FDA-Public Use
  Company Number: US-BAYER-2011-085872

PATIENT
  Sex: Female

DRUGS (1)
  1. ALEVE-D SINUS + COLD [Suspect]
     Dosage: UNK
     Route: 048

REACTIONS (1)
  - GAIT DISTURBANCE [None]
